FAERS Safety Report 16714155 (Version 2)
Quarter: 2019Q3

REPORT INFORMATION
  Report Type: Spontaneous
  Country: IL (occurrence: IL)
  Receive Date: 20190819
  Receipt Date: 20190821
  Transmission Date: 20191004
  Serious: Yes (Hospitalization, Other)
  Sender: FDA-Public Use
  Company Number: IL-AMGEN-ISRSP2019131182

PATIENT
  Age: 36 Year
  Sex: Male

DRUGS (3)
  1. KYPROLIS [Suspect]
     Active Substance: CARFILZOMIB
     Dosage: 20 PER SQUARE METERS
     Route: 065
     Dates: start: 20190814
  2. KYPROLIS [Suspect]
     Active Substance: CARFILZOMIB
     Indication: PLASMA CELL MYELOMA
     Dosage: 20 UNK
     Route: 065
     Dates: start: 2019, end: 2019
  3. KYPROLIS [Suspect]
     Active Substance: CARFILZOMIB
     Dosage: 36 UNK
     Route: 065
     Dates: start: 2019

REACTIONS (5)
  - Chest pain [Not Recovered/Not Resolved]
  - Gait inability [Not Recovered/Not Resolved]
  - Dyspnoea exertional [Not Recovered/Not Resolved]
  - Dizziness [Unknown]
  - Brain natriuretic peptide increased [Unknown]

NARRATIVE: CASE EVENT DATE: 2019
